FAERS Safety Report 18762321 (Version 1)
Quarter: 2021Q1

REPORT INFORMATION
  Report Type: Spontaneous
  Country: CZ (occurrence: CZ)
  Receive Date: 20210120
  Receipt Date: 20210120
  Transmission Date: 20210419
  Serious: Yes (Other)
  Sender: FDA-Public Use
  Company Number: CZ-GLAXOSMITHKLINE-CZ2021EME010227

PATIENT
  Sex: Female

DRUGS (3)
  1. DICLOFENAC [Suspect]
     Active Substance: DICLOFENAC
     Indication: BACK PAIN
     Dosage: 75 MG
     Dates: start: 1988, end: 2013
  2. NIMESULIDE [Suspect]
     Active Substance: NIMESULIDE
     Indication: BACK PAIN
     Dosage: UNK
     Dates: end: 2013
  3. IBUPROFEN. [Concomitant]
     Active Substance: IBUPROFEN
     Indication: BACK PAIN
     Dosage: 400 MG
     Dates: start: 1988

REACTIONS (2)
  - Gastrointestinal haemorrhage [Unknown]
  - Functional gastrointestinal disorder [Unknown]
